FAERS Safety Report 5240687-7 (Version None)
Quarter: 2007Q1

REPORT INFORMATION
  Report Type: 
  Country: None (occurrence: None)
  Receive Date: 20061208
  Receipt Date: 20060330
  Transmission Date: 20070707
  Serious: Yes (Other)
  Sender: FDA-Public Use
  Company Number: 2006UW05638

PATIENT
  Age: 71 Year
  Sex: Female
  Weight: 65.7 kg

DRUGS (5)
  1. CRESTOR [Suspect]
  2. ACTONEL [Concomitant]
  3. INDERAL [Concomitant]
  4. VITAMIN E [Concomitant]
  5. CALCIUM [Concomitant]

REACTIONS (1)
  - HYPOAESTHESIA [None]
